FAERS Safety Report 8477648-0 (Version None)
Quarter: 2012Q2

REPORT INFORMATION
  Report Type: 
  Country: None (occurrence: None)
  Receive Date: 20120620
  Receipt Date: 20120607
  Transmission Date: 20120825
  Serious: Yes (Hospitalization)
  Sender: FDA-Public Use
  Company Number: ACO_30671_2012

PATIENT
  Age: 50 Year
  Sex: Female

DRUGS (5)
  1. AMPYRA [Suspect]
     Indication: MULTIPLE SCLEROSIS
     Dosage: 10 MG, BID, ORAL
     Route: 048
     Dates: end: 20120604
  2. BETASERON [Concomitant]
  3. AMANTADINE HCL [Concomitant]
  4. ALENDRONATE SODIUM [Concomitant]
  5. CALCIUM CARBONATE [Concomitant]

REACTIONS (4)
  - FALL [None]
  - JOINT DISLOCATION [None]
  - MUSCULAR WEAKNESS [None]
  - JAW FRACTURE [None]
